FAERS Safety Report 10165040 (Version 1)
Quarter: 2014Q2

REPORT INFORMATION
  Report Type: Spontaneous
  Country: US (occurrence: US)
  Receive Date: 20140510
  Receipt Date: 20140510
  Transmission Date: 20141212
  Serious: No
  Sender: FDA-Public Use
  Company Number: US-BRISTOL-MYERS SQUIBB COMPANY-20243408

PATIENT
  Age: 68 Year
  Sex: Male

DRUGS (2)
  1. BYDUREON [Suspect]
  2. GLYBURIDE [Suspect]

REACTIONS (4)
  - Glycosylated haemoglobin increased [Unknown]
  - Abdominal pain upper [Unknown]
  - Abdominal distension [Unknown]
  - Injection site swelling [Unknown]
